FAERS Safety Report 7580930-2 (Version None)
Quarter: 2011Q2

REPORT INFORMATION
  Report Type: 
  Country: None (occurrence: None)
  Receive Date: 20110629
  Receipt Date: 20110620
  Transmission Date: 20111010
  Serious: Yes (Other)
  Sender: FDA-Public Use
  Company Number: FR-US-EMD SERONO, INC.-7065993

PATIENT
  Sex: Female

DRUGS (5)
  1. ASPIRIN [Suspect]
     Indication: ANGIOPATHY
     Route: 048
     Dates: start: 20100101
  2. MENOPUR [Suspect]
     Indication: OVULATION INDUCTION
     Route: 058
     Dates: start: 20101101, end: 20101129
  3. GONAL-F [Suspect]
     Indication: OVULATION INDUCTION
     Route: 058
     Dates: start: 20101101, end: 20101129
  4. FOLIC ACID [Suspect]
     Indication: VITAMIN SUPPLEMENTATION
     Route: 048
     Dates: start: 20101101, end: 20101129
  5. CETROTIDE [Suspect]
     Indication: OVULATION INDUCTION
     Route: 058
     Dates: start: 20101101, end: 20101129

REACTIONS (2)
  - MYDRIASIS [None]
  - AMAUROSIS [None]
